FAERS Safety Report 9164991 (Version 2)
Quarter: 2013Q1

REPORT INFORMATION
  Report Type: Spontaneous
  Country: US (occurrence: US)
  Receive Date: 20130315
  Receipt Date: 20130322
  Transmission Date: 20140127
  Serious: Yes (Other)
  Sender: FDA-Public Use
  Company Number: US-PERRIGO-13US002467

PATIENT
  Age: 46 Year
  Sex: Male
  Weight: 86.17 kg

DRUGS (4)
  1. XC DAY PE-NITE FREE [Suspect]
     Indication: INFLUENZA
     Dosage: TWO CAPSULES, SINGLE
     Route: 048
     Dates: start: 20130304, end: 20130304
  2. XC DAY PE-NITE FREE [Suspect]
     Indication: NASOPHARYNGITIS
     Dosage: TWO CAPSULES, UNK
     Route: 048
     Dates: start: 201301
  3. ANTIHYPERTENSIVES [Concomitant]
     Indication: HYPERTENSION
     Dosage: UNK
     Route: 048
  4. NEXIUM [Concomitant]
     Indication: GASTROOESOPHAGEAL REFLUX DISEASE
     Dosage: UNK
     Route: 048

REACTIONS (6)
  - Hypersensitivity [Recovered/Resolved]
  - Chest pain [Recovered/Resolved]
  - Urticaria [Recovered/Resolved]
  - Chest discomfort [Recovered/Resolved]
  - Blood pressure increased [Recovering/Resolving]
  - Hyperhidrosis [Recovered/Resolved]
